FAERS Safety Report 15672953 (Version 6)
Quarter: 2019Q2

REPORT INFORMATION
  Report Type: Report from Study
  Country: US (occurrence: US)
  Receive Date: 20181129
  Receipt Date: 20190517
  Transmission Date: 20190711
  Serious: Yes (Hospitalization, Other)
  Sender: FDA-Public Use
  Company Number: US-TESARO-2018-TSO0766-US

PATIENT
  Age: 68 Year
  Sex: Female

DRUGS (4)
  1. ZEJULA [Suspect]
     Active Substance: NIRAPARIB
     Dosage: 200 MG, QPM (WITHOUT FOOD)
     Route: 048
     Dates: start: 20180912, end: 2018
  2. AMLODIPINE [Concomitant]
     Active Substance: AMLODIPINE BESYLATE
     Indication: BLOOD PRESSURE ABNORMAL
     Dosage: 5 MG, UNK
  3. ZEJULA [Suspect]
     Active Substance: NIRAPARIB
     Indication: OVARIAN CANCER
     Dosage: 300 MG, QD, 3 CAPSULES BY MOUTH ONCE DAILY
     Route: 048
     Dates: start: 20180911
  4. ZEJULA [Suspect]
     Active Substance: NIRAPARIB
     Dosage: 100 MG, QD, PM WITH FOOD
     Route: 048
     Dates: start: 20181021

REACTIONS (28)
  - Bone pain [Unknown]
  - White blood cell count decreased [Unknown]
  - Somnolence [Not Recovered/Not Resolved]
  - Thyroid mass [Unknown]
  - Vomiting [Unknown]
  - Taste disorder [Recovering/Resolving]
  - Constipation [Unknown]
  - Musculoskeletal pain [Recovered/Resolved]
  - Gait inability [Unknown]
  - Nausea [Recovered/Resolved]
  - Arthralgia [Recovered/Resolved]
  - Back pain [Recovered/Resolved]
  - Dry throat [Recovering/Resolving]
  - Laboratory test abnormal [Unknown]
  - Poor quality sleep [Recovered/Resolved]
  - Eye haemorrhage [Unknown]
  - Paraesthesia oral [Recovering/Resolving]
  - Headache [Recovered/Resolved]
  - Abdominal pain upper [Unknown]
  - Myalgia [Recovered/Resolved]
  - Blood pressure increased [Not Recovered/Not Resolved]
  - Haemoglobin decreased [Unknown]
  - Platelet count increased [Not Recovered/Not Resolved]
  - Red blood cell count decreased [Unknown]
  - Heart rate increased [Not Recovered/Not Resolved]
  - Headache [Not Recovered/Not Resolved]
  - Anxiety [Recovering/Resolving]
  - Product dose omission [Unknown]

NARRATIVE: CASE EVENT DATE: 20180919
